FAERS Safety Report 22135118 (Version 1)
Quarter: 2023Q1

REPORT INFORMATION
  Report Type: Spontaneous
  Country: US (occurrence: None)
  Receive Date: 20230323
  Receipt Date: 20230323
  Transmission Date: 20230417
  Serious: No
  Sender: FDA-Public Use
  Company Number: None

PATIENT
  Age: 74 Year
  Sex: Female
  Weight: 76.95 kg

DRUGS (6)
  1. BONIVA [Suspect]
     Active Substance: IBANDRONATE SODIUM
  2. SYNTHROID [Concomitant]
     Active Substance: LEVOTHYROXINE SODIUM
  3. dilitiazem XR [Concomitant]
  4. ROSUVASTATIN [Concomitant]
     Active Substance: ROSUVASTATIN
  5. XARELTO [Concomitant]
     Active Substance: RIVAROXABAN
  6. LINZESS [Concomitant]
     Active Substance: LINACLOTIDE

REACTIONS (4)
  - Fall [None]
  - Femur fracture [None]
  - Lower limb fracture [None]
  - Multiple fractures [None]

NARRATIVE: CASE EVENT DATE: 20221202
